FAERS Safety Report 22778792 (Version 3)
Quarter: 2025Q1

REPORT INFORMATION
  Report Type: Spontaneous
  Country: US (occurrence: US)
  Receive Date: 20230802
  Receipt Date: 20250319
  Transmission Date: 20250409
  Serious: No
  Sender: BAYER HEALTHCARE PHARMACEUTICALS INC.
  Company Number: US-BAYER-2023A103467

PATIENT
  Age: 32 Year
  Sex: Male

DRUGS (2)
  1. JIVI [Suspect]
     Active Substance: DAMOCTOCOG ALFA PEGOL
     Indication: Factor VIII deficiency
     Route: 042
     Dates: start: 202303
  2. JIVI [Suspect]
     Active Substance: DAMOCTOCOG ALFA PEGOL
     Indication: Factor VIII deficiency
     Route: 042
     Dates: start: 202303

REACTIONS (3)
  - Swelling [None]
  - Migraine [None]
  - Muscle spasms [None]

NARRATIVE: CASE EVENT DATE: 20230717
